FAERS Safety Report 4963736-X (Version None)
Quarter: 2006Q1

REPORT INFORMATION
  Report Type: 
  Country: None (occurrence: None)
  Receive Date: 20060330
  Receipt Date: 20060214
  Transmission Date: 20060701
  Serious: Yes (Hospitalization)
  Sender: FDA-Public Use
  Company Number: 200513109BWH

PATIENT
  Age: 72 Year
  Sex: Female

DRUGS (1)
  1. SORAFENIB [Suspect]
     Indication: METASTATIC RENAL CELL CARCINOMA
     Dosage: 400 MG, BID, ORAL
     Route: 048
     Dates: start: 20051201

REACTIONS (3)
  - DYSPNOEA [None]
  - FALL [None]
  - GAIT DISTURBANCE [None]
